FAERS Safety Report 17624631 (Version 2)
Quarter: 2020Q3

REPORT INFORMATION
  Report Type: Spontaneous
  Country: US (occurrence: US)
  Receive Date: 20200403
  Receipt Date: 20200902
  Transmission Date: 20201102
  Serious: Yes (Other)
  Sender: FDA-Public Use
  Company Number: US-PFM-2020-03855

PATIENT
  Age: 2 Month
  Sex: Female

DRUGS (5)
  1. HEMANGEOL [Suspect]
     Active Substance: PROPRANOLOL HYDROCHLORIDE
     Indication: INFANTILE HAEMANGIOMA
     Dosage: 0.6 MG/KG/D DIVIDED TWICE DAILY
     Route: 048
  2. NIFEDIPINE. [Suspect]
     Active Substance: NIFEDIPINE
     Indication: HYPERTENSION
     Dosage: 60 MG, QD (1/DAY)
     Route: 063
  3. HEMANGEOL [Suspect]
     Active Substance: PROPRANOLOL HYDROCHLORIDE
     Dosage: 3.4 MG/KG/D DIVIDED TWICE DAILY
     Route: 048
  4. LABETALOL [Suspect]
     Active Substance: LABETALOL\LABETALOL HYDROCHLORIDE
     Indication: HYPERTENSION
     Dosage: 150 MG, BID (2/DAY)
     Route: 063
  5. HYDRALAZINE [Suspect]
     Active Substance: HYDRALAZINE HYDROCHLORIDE
     Indication: HYPERTENSION
     Dosage: 25 MG, BID (2/DAY)
     Route: 063

REACTIONS (3)
  - Overdose [Unknown]
  - Motor developmental delay [Recovered/Resolved]
  - Middle insomnia [Recovered/Resolved]
